FAERS Safety Report 5692110-6 (Version None)
Quarter: 2008Q1

REPORT INFORMATION
  Report Type: 
  Country: None (occurrence: None)
  Receive Date: 20080331
  Receipt Date: 20080214
  Transmission Date: 20080703
  Serious: Yes (Other)
  Sender: FDA-Public Use
  Company Number: 2008000347

PATIENT
  Age: 56 Year
  Sex: Female

DRUGS (11)
  1. ERLOTINIB (ERLOTINIB) (TABLET) (ERLOTINIB [Suspect]
     Indication: LUNG NEOPLASM MALIGNANT
     Dosage: (150 MG,QD), ORAL
     Route: 048
     Dates: start: 20080110
  2. ALDACTONE [Concomitant]
  3. CYTOTEC [Concomitant]
  4. VOLTAREN [Concomitant]
  5. HOCHU-EKKI-TO [Concomitant]
  6. LASIX [Concomitant]
  7. MEXITIL [Concomitant]
  8. METHYCOBAL (MECOBALAMIN) [Concomitant]
  9. NOVAMIN (PROCHLORPERAZINE) [Concomitant]
  10. MAGNESIUM HYDROXIDE TAB [Concomitant]
  11. OXYCONTIN [Concomitant]

REACTIONS (1)
  - TUMOUR LYSIS SYNDROME [None]
